FAERS Safety Report 7002538-X (Version None)
Quarter: 2010Q3

REPORT INFORMATION
  Report Type: 
  Country: None (occurrence: None)
  Receive Date: 20100920
  Receipt Date: 20100723
  Transmission Date: 20110219
  Serious: No
  Sender: FDA-Public Use
  Company Number: US-ASTRAZENECA-2010SE34585

PATIENT
  Age: 53 Year
  Sex: Male
  Weight: 72.6 kg

DRUGS (7)
  1. SEROQUEL [Suspect]
     Indication: BIPOLAR DISORDER
     Dosage: 300-400 MG
     Route: 048
     Dates: start: 20080101, end: 20080101
  2. SEROQUEL [Suspect]
     Indication: SCHIZOPHRENIA
     Dosage: 300-400 MG
     Route: 048
     Dates: start: 20080101, end: 20080101
  3. SEROQUEL [Suspect]
     Indication: POST-TRAUMATIC STRESS DISORDER
     Dosage: 300-400 MG
     Route: 048
     Dates: start: 20080101, end: 20080101
  4. DEPAKOTE [Concomitant]
  5. CEPHALEXIN [Concomitant]
  6. TRAZODONE HCL [Concomitant]
  7. PERPHENAZINE [Concomitant]

REACTIONS (2)
  - DIABETES MELLITUS [None]
  - VISUAL ACUITY REDUCED [None]
